FAERS Safety Report 8588066-9 (Version None)
Quarter: 2012Q3

REPORT INFORMATION
  Report Type: 
  Country: None (occurrence: None)
  Receive Date: 20120813
  Receipt Date: 20120807
  Transmission Date: 20120928
  Serious: No
  Sender: FDA-Public Use
  Company Number: US-PFIZER INC-2012193768

PATIENT
  Age: 60 Year
  Sex: Male
  Weight: 70.748 kg

DRUGS (5)
  1. LORAZEPAM [Suspect]
     Indication: DEPRESSION
     Dosage: 1 MG, AS NEEDED
     Dates: start: 20120701
  2. CHANTIX [Suspect]
     Indication: SMOKING CESSATION THERAPY
     Dosage: 0.5 MG, DAILY
     Route: 048
     Dates: start: 20120701
  3. TERAZOSIN [Concomitant]
     Indication: BENIGN PROSTATIC HYPERPLASIA
     Dosage: 10 MG, DAILY
  4. CITALOPRAM [Concomitant]
     Indication: DEPRESSION
     Dosage: UNK, DAILY
     Dates: start: 20120701
  5. CHANTIX [Suspect]
     Dosage: 1 MG, DAILY
     Route: 048
     Dates: start: 20120101

REACTIONS (1)
  - RASH [None]
